FAERS Safety Report 4315675-5 (Version None)
Quarter: 2004Q1

REPORT INFORMATION
  Report Type: 
  Country: None (occurrence: None)
  Receive Date: 20040309
  Receipt Date: 20040219
  Transmission Date: 20041129
  Serious: Yes (Other)
  Sender: FDA-Public Use
  Company Number: USA040259823

PATIENT
  Age: 35 Year
  Sex: Male

DRUGS (2)
  1. ZYPREXA [Suspect]
     Indication: SCHIZOPHRENIA
     Dosage: 20 MG/ IN THE EVENING
     Dates: start: 19970101
  2. ATIVAN [Concomitant]

REACTIONS (2)
  - HEPATOMEGALY [None]
  - WEIGHT INCREASED [None]
